FAERS Safety Report 7811884-9 (Version None)
Quarter: 2011Q4

REPORT INFORMATION
  Report Type: 
  Country: None (occurrence: None)
  Receive Date: 20111013
  Receipt Date: 20111003
  Transmission Date: 20120403
  Serious: Yes (Hospitalization)
  Sender: FDA-Public Use
  Company Number: PHHY2011MX88027

PATIENT
  Sex: Female

DRUGS (2)
  1. JANUMET [Concomitant]
     Indication: DIABETES MELLITUS
     Dosage: 2 DF, DAILY
  2. DIOVAN [Suspect]
     Indication: HYPERTENSION
     Dosage: 1 DF, DAILY (80 MG)
     Dates: start: 20101001

REACTIONS (2)
  - ANKLE FRACTURE [None]
  - FALL [None]
